FAERS Safety Report 20336126 (Version 1)
Quarter: 2022Q1

REPORT INFORMATION
  Report Type: Spontaneous
  Country: US (occurrence: None)
  Receive Date: 20220114
  Receipt Date: 20220114
  Transmission Date: 20220423
  Serious: Yes (unspecified)
  Sender: FDA-Public Use
  Company Number: None

PATIENT
  Age: 38 Year
  Sex: Male
  Weight: 72.6 kg

DRUGS (2)
  1. ISOVUE 300 [Suspect]
     Active Substance: IOPAMIDOL
     Indication: Haemangiopericytoma
     Dosage: FREQUENCY : ONCE;?
     Route: 042
     Dates: start: 20220113, end: 20220113
  2. ISOVUE 300 [Suspect]
     Active Substance: IOPAMIDOL
     Indication: Dysplastic naevus

REACTIONS (2)
  - Urticaria [None]
  - Pruritus [None]

NARRATIVE: CASE EVENT DATE: 20220113
